FAERS Safety Report 6681533-4 (Version None)
Quarter: 2010Q2

REPORT INFORMATION
  Report Type: 
  Country: None (occurrence: None)
  Receive Date: 20100414
  Receipt Date: 20100405
  Transmission Date: 20101027
  Serious: Yes (Hospitalization)
  Sender: FDA-Public Use
  Company Number: PHHY2010JP13719

PATIENT
  Sex: Female
  Weight: 57 kg

DRUGS (1)
  1. TEGRETOL [Suspect]
     Indication: TRIGEMINAL NEURALGIA
     Dosage: 400 MG/DAY
     Route: 048
     Dates: start: 20100223, end: 20100303

REACTIONS (10)
  - BLOOD GLUCOSE INCREASED [None]
  - DERMATITIS EXFOLIATIVE [None]
  - ERYTHEMA MULTIFORME [None]
  - GAMMA-GLUTAMYLTRANSFERASE INCREASED [None]
  - GENERALISED ERYTHEMA [None]
  - MONOCYTE COUNT INCREASED [None]
  - OCULAR HYPERAEMIA [None]
  - PLATELET COUNT DECREASED [None]
  - RED BLOOD CELL COUNT INCREASED [None]
  - WHITE BLOOD CELL COUNT INCREASED [None]
